FAERS Safety Report 18620861 (Version 2)
Quarter: 2021Q1

REPORT INFORMATION
  Report Type: Spontaneous
  Country: GB (occurrence: GB)
  Receive Date: 20201215
  Receipt Date: 20210106
  Transmission Date: 20210419
  Serious: Yes (Hospitalization, Other)
  Sender: FDA-Public Use
  Company Number: GB-PURDUE-USA-2020-0187207

PATIENT
  Age: 57 Year
  Sex: Female

DRUGS (3)
  1. OXYCODONE HYDROCHLORIDE. [Suspect]
     Active Substance: OXYCODONE HYDROCHLORIDE
     Indication: PRODUCT USED FOR UNKNOWN INDICATION
     Dosage: 14 TABLET, UNK (STRENGTH 10 MG)
     Route: 065
  2. OXYCODONE HYDROCHLORIDE. [Suspect]
     Active Substance: OXYCODONE HYDROCHLORIDE
     Dosage: 14 TABLET, UNK (STRENGTH 10 MG)
     Route: 065
  3. MIRTAZAPINE. [Concomitant]
     Active Substance: MIRTAZAPINE
     Indication: DEPRESSION
     Dosage: UNK

REACTIONS (7)
  - Unresponsive to stimuli [Recovering/Resolving]
  - Hypoxia [Unknown]
  - Hepatic function abnormal [Unknown]
  - Toxic leukoencephalopathy [Recovering/Resolving]
  - Renal impairment [Unknown]
  - Overdose [Recovering/Resolving]
  - Intentional overdose [Recovering/Resolving]
